FAERS Safety Report 4974844-1 (Version None)
Quarter: 2006Q1

REPORT INFORMATION
  Report Type: 
  Country: None (occurrence: None)
  Receive Date: 20060227
  Receipt Date: 20050930
  Transmission Date: 20060701
  Serious: Yes (Hospitalization)
  Sender: FDA-Public Use
  Company Number: USA0509109637

PATIENT
  Age: 49 Year
  Sex: Female
  Weight: 84.8 kg

DRUGS (10)
  1. SYMBYAX [Suspect]
     Indication: BIPOLAR DISORDER
     Dosage: DAILY (1/D), ORAL
     Route: 048
     Dates: end: 20050921
  2. ATENOLOL [Concomitant]
  3. EASPIRIN (ACETYLSALICYLIC ACID) [Concomitant]
  4. PREVACID [Concomitant]
  5. LIPITOR [Concomitant]
  6. FOLIC ACID [Concomitant]
  7. BENZYLHYDROCHLORTHIAZIDE (BENZYLHYDROCHLORTHIAZIDE) [Concomitant]
  8. VITAMIN E (HERBAL OIL NOS) [Concomitant]
  9. VITAMIN C (VITAMIN C) [Concomitant]
  10. AMBIEN [Concomitant]

REACTIONS (2)
  - GLUCOSE TOLERANCE IMPAIRED [None]
  - PANCREATITIS [None]
